FAERS Safety Report 13582080 (Version 1)
Quarter: 2017Q2

REPORT INFORMATION
  Report Type: Spontaneous
  Country: US (occurrence: US)
  Receive Date: 20170525
  Receipt Date: 20170525
  Transmission Date: 20170830
  Serious: No
  Sender: FDA-Public Use
  Company Number: GXBR2017US001349

PATIENT
  Sex: Male

DRUGS (1)
  1. LORATADINE TABLETS [Suspect]
     Active Substance: LORATADINE
     Indication: ALLERGY PROPHYLAXIS
     Dosage: UNK DF, QD
     Route: 048
     Dates: start: 20170331

REACTIONS (1)
  - Drug ineffective [Not Recovered/Not Resolved]

NARRATIVE: CASE EVENT DATE: 20170406
